FAERS Safety Report 17770979 (Version 1)
Quarter: 2020Q2

REPORT INFORMATION
  Report Type: Spontaneous
  Country: US (occurrence: US)
  Receive Date: 20200512
  Receipt Date: 20200512
  Transmission Date: 20200714
  Serious: No
  Sender: FDA-Public Use
  Company Number: US-AKRON, INC.-2083709

PATIENT
  Sex: Male

DRUGS (1)
  1. AZASITE [Suspect]
     Active Substance: AZITHROMYCIN MONOHYDRATE
     Route: 047
     Dates: start: 201911

REACTIONS (3)
  - Eye disorder [Unknown]
  - Eyelid margin crusting [Unknown]
  - Drug ineffective [Unknown]
